FAERS Safety Report 5703944-3 (Version None)
Quarter: 2008Q2

REPORT INFORMATION
  Report Type: 
  Country: None (occurrence: None)
  Receive Date: 20080409
  Receipt Date: 20080401
  Transmission Date: 20081010
  Serious: Yes (Other)
  Sender: FDA-Public Use
  Company Number: 2008006749

PATIENT
  Sex: Female

DRUGS (1)
  1. LISTERINE WHITENING PRE-BRUSH RINSE (NO ACTIVE INGREDIENT) [Suspect]
     Dosage: ONCE, EXCEPT MONDAY, TWICE,ORAL
     Route: 048
     Dates: start: 20080316, end: 20080318

REACTIONS (4)
  - GLOSSODYNIA [None]
  - INFLAMMATION [None]
  - PARAESTHESIA ORAL [None]
  - THERMAL BURN [None]
